APPROVED DRUG PRODUCT: KYPROLIS
Active Ingredient: CARFILZOMIB
Strength: 10MG/VIAL
Dosage Form/Route: POWDER;INTRAVENOUS
Application: N202714 | Product #003
Applicant: ONYX PHARMACEUTICALS INC A WHOLLY OWNED SUB OF AMGEN INC
Approved: Jun 7, 2018 | RLD: Yes | RS: Yes | Type: RX

PATENTS:
Patent RE47954 | Expires: Oct 21, 2029
Patent 7737112 | Expires: Dec 7, 2027
Patent 7417042 | Expires: Jul 20, 2026
Patent 9493582 | Expires: Feb 27, 2033
Patent 7417042*PED | Expires: Jan 20, 2027
Patent 9493582*PED | Expires: Aug 27, 2033
Patent 7737112*PED | Expires: Jun 7, 2028
Patent RE47954*PED | Expires: Apr 21, 2030

EXCLUSIVITY:
Code: PED | Date: Nov 22, 2028
Code: M-14 | Date: May 22, 2028